FAERS Safety Report 8923860 (Version 1)
Quarter: 2012Q4

REPORT INFORMATION
  Report Type: Report from Study
  Country: US (occurrence: US)
  Receive Date: 20121127
  Receipt Date: 20121127
  Transmission Date: 20130627
  Serious: Yes (Death, Hospitalization, Other)
  Sender: FDA-Public Use
  Company Number: US-TEVA-371485USA

PATIENT
  Sex: Male
  Weight: 84.9 kg

DRUGS (17)
  1. DOXORUBICIN [Suspect]
     Indication: SARCOMA METASTATIC
     Route: 040
     Dates: start: 20120919
  2. DOXORUBICIN [Suspect]
     Dosage: cyclic-75mg/m2 (153mg total dose)
     Route: 040
     Dates: start: 20121031
  3. TH-302 [Suspect]
     Indication: SARCOMA METASTATIC
     Dosage: cyclic
     Route: 042
     Dates: start: 20120919
  4. TH-302 [Suspect]
     Dosage: cyclic-300mg/m2 (612mg total dose)
     Route: 042
     Dates: start: 20121107
  5. ACETAMINOPHEN [Concomitant]
     Dates: start: 20121024
  6. DIPHENHYDRAMINE [Concomitant]
     Dates: start: 20121024
  7. HYDROCORTISONE [Concomitant]
     Dates: start: 20121024
  8. HYDROMORPHONE [Concomitant]
     Dates: start: 20121024
  9. OXYCODONE [Concomitant]
     Dates: start: 20121010
  10. ONDANSETRON [Concomitant]
     Dates: start: 20121001
  11. LIDOCAINE [Concomitant]
     Dates: start: 20121001
  12. OXYCONTIN [Concomitant]
     Dates: start: 20121001
  13. PROMETHAZINE [Concomitant]
     Dates: start: 20120912
  14. VALSARTAN [Concomitant]
     Dates: start: 20120827
  15. DOCUSATE [Concomitant]
     Dates: start: 20120827
  16. OMEPRAZOLE [Concomitant]
     Dates: start: 20120827
  17. CETIRIZINE [Concomitant]
     Dates: start: 20120827

REACTIONS (2)
  - Sudden death [Fatal]
  - Septic shock [Fatal]
